FAERS Safety Report 20666091 (Version 1)
Quarter: 2022Q2

REPORT INFORMATION
  Report Type: Spontaneous
  Country: FR (occurrence: FR)
  Receive Date: 20220403
  Receipt Date: 20220403
  Transmission Date: 20220721
  Serious: Yes (Death, Other)
  Sender: FDA-Public Use
  Company Number: None

PATIENT
  Age: 89 Year
  Sex: Female
  Weight: 96.2 kg

DRUGS (15)
  1. MORPHINE SULFATE [Suspect]
     Active Substance: MORPHINE SULFATE
     Indication: Pain
     Dosage: 6 DF, QD
     Route: 048
     Dates: start: 20220303, end: 20220307
  2. INSULIN LISPRO [Suspect]
     Active Substance: INSULIN LISPRO
     Indication: Diabetes mellitus
     Dosage: UNK
     Route: 058
     Dates: start: 20220303
  3. CHOLECALCIFEROL [Suspect]
     Active Substance: CHOLECALCIFEROL
     Indication: Vitamin supplementation
     Dosage: 1 DF, QD
     Route: 048
     Dates: end: 20220307
  4. ALLOPURINOL [Suspect]
     Active Substance: ALLOPURINOL
     Indication: Product used for unknown indication
     Dosage: 2 DF, QD
     Route: 048
     Dates: end: 20220305
  5. LOVENOX [Suspect]
     Active Substance: ENOXAPARIN SODIUM
     Indication: Prophylaxis
     Dosage: 0.4ML
     Route: 058
     Dates: start: 20220304, end: 20220305
  6. IPRATROPIUM BROMIDE [Suspect]
     Active Substance: IPRATROPIUM BROMIDE
     Indication: Oxygen saturation
     Dosage: UNK
     Route: 055
     Dates: start: 20220305
  7. TERBUTALINE SULFATE [Suspect]
     Active Substance: TERBUTALINE SULFATE
     Indication: Oxygen saturation
     Dosage: UNK
     Route: 055
     Dates: start: 20220305
  8. ACETAMINOPHEN [Suspect]
     Active Substance: ACETAMINOPHEN
     Indication: Pain
     Dosage: 3 G, QD
     Route: 042
     Dates: start: 20220303
  9. PANTOPRAZOLE [Suspect]
     Active Substance: PANTOPRAZOLE
     Indication: Product used for unknown indication
     Dosage: 20 MG, QD
     Route: 048
     Dates: start: 20220303, end: 20220306
  10. ATORVASTATIN CALCIUM [Suspect]
     Active Substance: ATORVASTATIN CALCIUM
     Indication: Product used for unknown indication
     Dosage: 20 MG, QD
     Route: 048
     Dates: end: 20220306
  11. GENTAMICIN [Suspect]
     Active Substance: GENTAMICIN
     Indication: Arthritis bacterial
     Dosage: 480 MG, QD
     Route: 042
     Dates: start: 20220304, end: 20220304
  12. MOVICOL [Suspect]
     Active Substance: POLYETHYLENE GLYCOL 3350\POTASSIUM CHLORIDE\SODIUM BICARBONATE\SODIUM CHLORIDE
     Indication: Constipation
     Route: 048
     Dates: end: 20220307
  13. CLOXACILLIN SODIUM [Suspect]
     Active Substance: CLOXACILLIN SODIUM
     Indication: Arthritis bacterial
     Dosage: 12 G, QD
     Route: 042
     Dates: start: 20220305
  14. SKENAN [Suspect]
     Active Substance: MORPHINE SULFATE
     Indication: Pain
     Dosage: 2 DF, QD
     Route: 048
     Dates: start: 20220303, end: 20220306
  15. FUROSEMIDE [Concomitant]
     Active Substance: FUROSEMIDE

REACTIONS (2)
  - Renal tubular necrosis [Fatal]
  - Acute kidney injury [Fatal]

NARRATIVE: CASE EVENT DATE: 20220306
